FAERS Safety Report 9821335 (Version 1)
Quarter: 2013Q4

REPORT INFORMATION
  Report Type: Spontaneous
  Country: US (occurrence: None)
  Receive Date: 20131028
  Receipt Date: 20131028
  Transmission Date: 20140711
  Serious: No
  Sender: FDA-Public Use
  Company Number: 2013US001121

PATIENT
  Age: 73 Year
  Sex: Female
  Weight: 64 kg

DRUGS (10)
  1. ICLUSIG [Suspect]
     Indication: CHRONIC MYELOID LEUKAEMIA
     Route: 048
     Dates: start: 20130206, end: 201302
  2. SYNTHROID (LEVOTHYROXINE SODIUM) [Concomitant]
  3. EXFORGE (AMLODIPINE BESILATE, VALSARTAN) [Concomitant]
  4. ESCITALOPRAM (ESCITALOPRAM) [Concomitant]
  5. METFORMIN (METFORMIN) [Concomitant]
  6. TASIGNA (NILOTINIB HYDROCHLORIDE) [Concomitant]
  7. GABAPENTIN (GABAPENTIN) [Concomitant]
  8. FERROUS SULFATE (FERROUS SULFATE) [Concomitant]
  9. TYLENOL W/CODEINE NO.3 (CODEINE PHOSPHATE, PARACETAMOL) [Concomitant]
  10. ADVIL (IBUPROFEN) [Concomitant]

REACTIONS (7)
  - Decreased appetite [None]
  - Arthralgia [None]
  - Pain [None]
  - Back pain [None]
  - Insomnia [None]
  - Asthenia [None]
  - Bone pain [None]
